FAERS Safety Report 6183607-3 (Version None)
Quarter: 2009Q2

REPORT INFORMATION
  Report Type: 
  Country: None (occurrence: None)
  Receive Date: 20090508
  Receipt Date: 20090429
  Transmission Date: 20091009
  Serious: Yes (Other)
  Sender: FDA-Public Use
  Company Number: US-JNJFOC-20090407231

PATIENT
  Sex: Female
  Weight: 60.33 kg

DRUGS (3)
  1. REMICADE [Suspect]
     Indication: RHEUMATOID ARTHRITIS
     Dosage: EVERY 6- 7 WEEKS
     Route: 042
  2. LISINOPRIL [Concomitant]
     Indication: BLOOD PRESSURE
  3. METFORMIN HCL [Concomitant]
     Indication: BLOOD GLUCOSE ABNORMAL

REACTIONS (3)
  - BLOOD GLUCOSE INCREASED [None]
  - PRURITUS [None]
  - RASH PRURITIC [None]
